FAERS Safety Report 26065353 (Version 1)
Quarter: 2025Q4

REPORT INFORMATION
  Report Type: Spontaneous
  Country: US (occurrence: None)
  Receive Date: 20251119
  Receipt Date: 20251119
  Transmission Date: 20260117
  Serious: Yes (Hospitalization)
  Sender: FDA-CTU
  Company Number: None

PATIENT
  Age: 36 Year
  Sex: Female
  Weight: 68.85 kg

DRUGS (4)
  1. LUPRON [Suspect]
     Active Substance: LEUPROLIDE ACETATE
     Indication: Heavy menstrual bleeding
     Dates: start: 20250930, end: 20251106
  2. VITAMIN D [Concomitant]
     Active Substance: VITAMIN D NOS
  3. IODINE [Concomitant]
     Active Substance: IODINE
  4. SELENIUM [Concomitant]
     Active Substance: SELENIUM

REACTIONS (10)
  - Paranoia [None]
  - Delusion [None]
  - Hallucination [None]
  - Physical assault [None]
  - Screaming [None]
  - Aggression [None]
  - Delusion [None]
  - Psychotic disorder [None]
  - Grandiosity [None]
  - Legal problem [None]

NARRATIVE: CASE EVENT DATE: 20251109
